FAERS Safety Report 13589593 (Version 1)
Quarter: 2017Q2

REPORT INFORMATION
  Report Type: Other
  Country: DE (occurrence: DE)
  Receive Date: 20170529
  Receipt Date: 20170529
  Transmission Date: 20170830
  Serious: Yes (Congenital Anomaly, Other)
  Sender: FDA-Public Use
  Company Number: DE-LUPIN PHARMACEUTICALS INC.-2017-02538

PATIENT

DRUGS (4)
  1. ERYTHROMYCIN. [Concomitant]
     Active Substance: ERYTHROMYCIN
     Indication: CHLAMYDIAL INFECTION
     Dosage: 500 MG, TID, 32.-33. GESTATIONAL WEEK
     Route: 064
  2. MONO-EMBOLEX [Concomitant]
     Active Substance: CERTOPARIN SODIUM
     Indication: FACTOR V LEIDEN MUTATION
     Dosage: 3000 IU, QD, 5-38.1 GESTATIONAL WEEK
     Route: 064
  3. PAROXETINE. [Suspect]
     Active Substance: PAROXETINE
     Indication: DEPRESSION
     Dosage: 20 MG, QD, 17.3-38.1 GESTATIONAL WEEK
     Route: 064
     Dates: start: 20160701, end: 20161123
  4. FOLSAEURE [Concomitant]
     Active Substance: FOLIC ACID
     Indication: PROPHYLAXIS OF NEURAL TUBE DEFECT
     Dosage: UNK
     Route: 064

REACTIONS (4)
  - Patent ductus arteriosus [Recovered/Resolved]
  - Tricuspid valve incompetence [Recovered/Resolved]
  - Foetal exposure during pregnancy [Unknown]
  - Persistent foetal circulation [Recovered/Resolved]

NARRATIVE: CASE EVENT DATE: 20160701
